FAERS Safety Report 22176235 (Version 3)
Quarter: 2024Q4

REPORT INFORMATION
  Report Type: Spontaneous
  Country: US (occurrence: US)
  Receive Date: 20230405
  Receipt Date: 20241126
  Transmission Date: 20250114
  Serious: Yes (Other)
  Sender: CSL BEHRING
  Company Number: US-BEH-2023157196

PATIENT
  Age: 12 Year
  Sex: Male

DRUGS (8)
  1. IDELVION [Suspect]
     Active Substance: COAGULATION FACTOR IX RECOMBINANT HUMAN
     Indication: Factor IX deficiency
     Dosage: 2245 INTERNATIONAL UNIT, QW
     Route: 058
     Dates: start: 202302
  2. IDELVION [Suspect]
     Active Substance: COAGULATION FACTOR IX RECOMBINANT HUMAN
     Indication: Factor IX deficiency
     Dosage: 2245 INTERNATIONAL UNIT, QW
     Route: 058
     Dates: start: 202302
  3. IDELVION [Suspect]
     Active Substance: COAGULATION FACTOR IX RECOMBINANT HUMAN
     Dosage: 2645 INTERNATIONAL UNIT, QW
     Route: 042
     Dates: start: 202101
  4. IDELVION [Suspect]
     Active Substance: COAGULATION FACTOR IX RECOMBINANT HUMAN
     Dosage: 2645 INTERNATIONAL UNIT, QW
     Route: 042
     Dates: start: 202101
  5. IDELVION [Suspect]
     Active Substance: COAGULATION FACTOR IX RECOMBINANT HUMAN
     Dosage: 2915 INTERNATIONAL UNIT, QW
     Route: 042
     Dates: start: 202101
  6. IDELVION [Suspect]
     Active Substance: COAGULATION FACTOR IX RECOMBINANT HUMAN
     Dosage: 2915 INTERNATIONAL UNIT, QW
     Route: 042
     Dates: start: 202101
  7. IDELVION [Suspect]
     Active Substance: COAGULATION FACTOR IX RECOMBINANT HUMAN
     Dosage: 2915 INTERNATIONAL UNIT, PRN
     Route: 042
     Dates: start: 202101
  8. IDELVION [Suspect]
     Active Substance: COAGULATION FACTOR IX RECOMBINANT HUMAN
     Dosage: 2915 INTERNATIONAL UNIT, PRN
     Route: 042
     Dates: start: 202101

REACTIONS (5)
  - Traumatic haemorrhage [Unknown]
  - Haemorrhage [Unknown]
  - Haemarthrosis [Recovered/Resolved]
  - Contusion [Unknown]
  - Off label use [Unknown]

NARRATIVE: CASE EVENT DATE: 20230314
